FAERS Safety Report 15333768 (Version 1)
Quarter: 2018Q3

REPORT INFORMATION
  Report Type: Spontaneous
  Country: US (occurrence: US)
  Receive Date: 20180830
  Receipt Date: 20180830
  Transmission Date: 20181010
  Serious: Yes (Other)
  Sender: FDA-Public Use
  Company Number: US-SA-2018SA237980

PATIENT

DRUGS (1)
  1. TAXOTERE [Suspect]
     Active Substance: DOCETAXEL
     Dosage: UNK
     Route: 042
     Dates: start: 20140503, end: 20140503

REACTIONS (5)
  - Pain [Unknown]
  - Impaired quality of life [Unknown]
  - Alopecia [Unknown]
  - Anxiety [Unknown]
  - Emotional distress [Unknown]
